FAERS Safety Report 22202204 (Version 4)
Quarter: 2024Q1

REPORT INFORMATION
  Report Type: Spontaneous
  Country: US (occurrence: US)
  Receive Date: 20230412
  Receipt Date: 20240219
  Transmission Date: 20240410
  Serious: Yes (Other)
  Sender: FDA-Public Use
  Company Number: US-AMGEN-USASP2023060128

PATIENT
  Sex: Female

DRUGS (19)
  1. OTEZLA [Suspect]
     Active Substance: APREMILAST
     Indication: Psoriatic arthropathy
     Dosage: 30 MILLIGRAM, BID
     Route: 048
  2. BUSPIRONE [Concomitant]
     Active Substance: BUSPIRONE HYDROCHLORIDE
     Dosage: 30 MILLIGRAM
  3. CLOBETASOL [Concomitant]
     Active Substance: CLOBETASOL
  4. FOLIC ACID [Concomitant]
     Active Substance: FOLIC ACID
     Dosage: 1000 MICROGRAM
  5. FUROSEMIDE [Concomitant]
     Active Substance: FUROSEMIDE
     Dosage: 20 MILLIGRAM
  6. HUMULIN R [Concomitant]
     Active Substance: INSULIN HUMAN
     Dosage: U-500
  7. HYOSCYAMINE [Concomitant]
     Active Substance: HYOSCYAMINE
     Dosage: 0.125 MILLIGRAM
  8. LORAZEPAM [Concomitant]
     Active Substance: LORAZEPAM
     Dosage: 1 MILLIGRAM
  9. MELOXICAM [Concomitant]
     Active Substance: MELOXICAM
     Dosage: 15 MILLIGRAM
  10. MONTELUKAST [Concomitant]
     Active Substance: MONTELUKAST SODIUM
     Dosage: 10 MILLIGRAM
  11. NITROGLYCERIN [Concomitant]
     Active Substance: NITROGLYCERIN
     Dosage: 0.4 MILLIGRAM
  12. OXYBUTYNIN [Concomitant]
     Active Substance: OXYBUTYNIN\OXYBUTYNIN CHLORIDE
     Dosage: 5 MILLIGRAM
  13. OXYCODONE [Concomitant]
     Active Substance: OXYCODONE\OXYCODONE HYDROCHLORIDE
     Dosage: 5 MILLIGRAM
  14. RANOLAZINE [Concomitant]
     Active Substance: RANOLAZINE
     Dosage: 500 MILLIGRAM
  15. ROPINIROLE [Concomitant]
     Active Substance: ROPINIROLE
     Dosage: 0.25 MILLIGRAM
  16. ROSUVASTATIN [Concomitant]
     Active Substance: ROSUVASTATIN
     Dosage: 5 MILLIGRAM
  17. SKYRIZI [Concomitant]
     Active Substance: RISANKIZUMAB-RZAA
     Dosage: 150 MILLIGRAM
  18. SOTALOL [Concomitant]
     Active Substance: SOTALOL
     Dosage: 80 MILLIGRAM
  19. SUCRALFATE [Concomitant]
     Active Substance: SUCRALFATE
     Dosage: 1 GRAM

REACTIONS (1)
  - Psoriatic arthropathy [Unknown]
